FAERS Safety Report 16724931 (Version 1)
Quarter: 2019Q3

REPORT INFORMATION
  Report Type: Spontaneous
  Country: US (occurrence: US)
  Receive Date: 20190704
  Receipt Date: 20190704
  Transmission Date: 20191005
  Serious: Yes (Hospitalization)
  Sender: FDA-Public Use
  Company Number: None

PATIENT
  Age: 59 Year
  Sex: Female
  Weight: 54.2 kg

DRUGS (1)
  1. NEXAVAR [Suspect]
     Active Substance: SORAFENIB
     Dates: end: 20190612

REACTIONS (6)
  - Hepatic function abnormal [None]
  - Confusional state [None]
  - Aphasia [None]
  - Renal impairment [None]
  - Encephalopathy [None]
  - Therapy cessation [None]

NARRATIVE: CASE EVENT DATE: 20190626
